FAERS Safety Report 5670038-5 (Version None)
Quarter: 2008Q1

REPORT INFORMATION
  Report Type: 
  Country: None (occurrence: None)
  Receive Date: 20080312
  Receipt Date: 20080227
  Transmission Date: 20080703
  Serious: Yes (Other)
  Sender: FDA-Public Use
  Company Number: JPI-P-003138

PATIENT
  Sex: Female

DRUGS (2)
  1. XYREM [Suspect]
     Indication: DRUG USE FOR UNKNOWN INDICATION
     Dosage: ORAL
     Route: 048
     Dates: start: 20080101, end: 20080101
  2. ALCOHOL (ETHANOL) [Concomitant]

REACTIONS (3)
  - ALCOHOL USE [None]
  - DRUG DIVERSION [None]
  - INTENTIONAL DRUG MISUSE [None]
